FAERS Safety Report 8090552-5 (Version None)
Quarter: 2012Q1

REPORT INFORMATION
  Report Type: 
  Country: None (occurrence: None)
  Receive Date: 20120129
  Receipt Date: 20111103
  Transmission Date: 20120608
  Serious: No
  Sender: FDA-Public Use
  Company Number: US-ABBOTT-11P-163-0871270-00

PATIENT
  Age: 57 Year
  Sex: Female

DRUGS (13)
  1. ATENOLOL [Concomitant]
     Indication: HYPERTENSION
  2. VERAPAMIL [Concomitant]
     Indication: HYPERTENSION
  3. KLOR-CON [Concomitant]
     Indication: PRODUCT USED FOR UNKNOWN INDICATION
     Dosage: DAILY
  4. VITAMIN B-12 [Concomitant]
     Indication: PRODUCT USED FOR UNKNOWN INDICATION
  5. LOMOTIL [Concomitant]
     Indication: DIARRHOEA
  6. LIALDA [Concomitant]
     Indication: PRODUCT USED FOR UNKNOWN INDICATION
  7. WELLBUTRIN [Concomitant]
     Indication: PRODUCT USED FOR UNKNOWN INDICATION
  8. HUMIRA [Suspect]
     Indication: CROHN'S DISEASE
  9. CYMBALTA [Concomitant]
     Indication: PRODUCT USED FOR UNKNOWN INDICATION
     Dosage: DAILY
  10. NORCO [Concomitant]
     Indication: PAIN
     Dosage: AS REQUIRED
  11. HYDROCHLOROTHIAZIDE [Concomitant]
     Indication: HYPERTENSION
  12. IMURAN [Concomitant]
     Indication: CROHN'S DISEASE
     Dosage: DAILY
  13. PROTONIX [Concomitant]
     Indication: DYSPEPSIA

REACTIONS (11)
  - ERYTHEMA [None]
  - EPISTAXIS [None]
  - HEPATIC ENZYME INCREASED [None]
  - MALAISE [None]
  - NAUSEA [None]
  - INFECTION [None]
  - BLOOD POTASSIUM DECREASED [None]
  - SKIN LESION [None]
  - VOMITING [None]
  - MIGRAINE [None]
  - PYREXIA [None]
